FAERS Safety Report 10765165 (Version 1)
Quarter: 2015Q1

REPORT INFORMATION
  Report Type: Spontaneous
  Country: US (occurrence: None)
  Receive Date: 20150204
  Receipt Date: 20150204
  Transmission Date: 20150721
  Serious: No
  Sender: FDA-Public Use
  Company Number: None

PATIENT
  Age: 85 Year
  Sex: Female
  Weight: 54.43 kg

DRUGS (7)
  1. ALIGN [Concomitant]
     Active Substance: BIFIDOBACTERIUM LONGUM SUBSP. INFANTIS
  2. VITAMIN D [Concomitant]
     Active Substance: CHOLECALCIFEROL
  3. EXELON [Suspect]
     Active Substance: RIVASTIGMINE TARTRATE
     Indication: DEMENTIA ALZHEIMER^S TYPE
     Route: 061
     Dates: start: 20120417, end: 20120606
  4. MAG-OX [Concomitant]
     Active Substance: MAGNESIUM OXIDE
  5. CRANBERRY. [Concomitant]
     Active Substance: CRANBERRY
  6. COQ10 [Concomitant]
     Active Substance: UBIDECARENONE
  7. VITAMIN C??? [Concomitant]

REACTIONS (2)
  - Drug ineffective [None]
  - Hallucination [None]

NARRATIVE: CASE EVENT DATE: 20120515
